FAERS Safety Report 4461649-3 (Version None)
Quarter: 2004Q3

REPORT INFORMATION
  Report Type: 
  Country: None (occurrence: None)
  Receive Date: 20040924
  Receipt Date: 20040924
  Transmission Date: 20050211
  Serious: Yes (Hospitalization)
  Sender: FDA-Public Use
  Company Number: None

PATIENT
  Age: 55 Year
  Sex: Male

DRUGS (3)
  1. CELEBREX [Suspect]
     Indication: CARCINOMA
     Dosage: 400 MG PO OR PER PEG BID
     Route: 048
     Dates: start: 20040906, end: 20040923
  2. TAXOL [Suspect]
     Dosage: 30 MG/M2 IV
     Route: 042
     Dates: start: 20040914
  3. CARBOPLATIN [Suspect]
     Dosage: AUC 2

REACTIONS (2)
  - NAUSEA [None]
  - VOMITING [None]
